FAERS Safety Report 7694412-0 (Version None)
Quarter: 2011Q3

REPORT INFORMATION
  Report Type: 
  Country: None (occurrence: None)
  Receive Date: 20110819
  Receipt Date: 20110811
  Transmission Date: 20111222
  Serious: Yes (Hospitalization, Other)
  Sender: FDA-Public Use
  Company Number: US-SANOFI-AVENTIS-2011SA051936

PATIENT
  Sex: Female

DRUGS (1)
  1. PLAVIX [Suspect]
     Route: 065
     Dates: start: 20000101

REACTIONS (4)
  - VENOUS THROMBOSIS [None]
  - FUNGAL INFECTION [None]
  - SKIN ULCER [None]
  - PAIN IN EXTREMITY [None]
